FAERS Safety Report 19830797 (Version 1)
Quarter: 2021Q3

REPORT INFORMATION
  Report Type: Spontaneous
  Country: JP (occurrence: JP)
  Receive Date: 20210915
  Receipt Date: 20210915
  Transmission Date: 20211014
  Serious: Yes (Hospitalization)
  Sender: FDA-Public Use
  Company Number: JP-TEVA-2021-JP-1952342

PATIENT
  Age: 66 Year
  Sex: Female

DRUGS (6)
  1. ASENAPINE. [Suspect]
     Active Substance: ASENAPINE
     Indication: BIPOLAR DISORDER
     Route: 065
  2. LITHIUM. [Suspect]
     Active Substance: LITHIUM
     Indication: BIPOLAR DISORDER
     Dosage: 1000 MILLIGRAM DAILY;
     Route: 065
  3. FLURAZEPAM [Concomitant]
     Active Substance: FLURAZEPAM HYDROCHLORIDE
     Indication: BIPOLAR DISORDER
     Dosage: 15 MILLIGRAM DAILY;
     Route: 065
  4. QUETIAPINE. [Suspect]
     Active Substance: QUETIAPINE
     Indication: BIPOLAR DISORDER
     Dosage: 50 MILLIGRAM DAILY;
     Route: 065
  5. EDOXABAN [Concomitant]
     Active Substance: EDOXABAN TOSYLATE
     Indication: THROMBOSIS PROPHYLAXIS
     Dosage: 15 MILLIGRAM DAILY;
     Route: 065
  6. SIMVASTATIN. [Concomitant]
     Active Substance: SIMVASTATIN
     Indication: HYPERLIPIDAEMIA
     Dosage: 5 MILLIGRAM DAILY;
     Route: 065

REACTIONS (2)
  - Toxicity to various agents [Recovered/Resolved]
  - Deep vein thrombosis [Recovered/Resolved]
